FAERS Safety Report 5741383-X (Version None)
Quarter: 2008Q2

REPORT INFORMATION
  Report Type: 
  Country: None (occurrence: None)
  Receive Date: 20080514
  Receipt Date: 20080430
  Transmission Date: 20081010
  Serious: Yes (Life-Threatening)
  Sender: FDA-Public Use
  Company Number: 2008US001169

PATIENT
  Age: 76 Year
  Sex: Male
  Weight: 60 kg

DRUGS (9)
  1. AMBISOME [Suspect]
     Indication: FUNGAL INFECTION
     Dosage: 200 MG, UID/QD, ORAL
     Route: 048
     Dates: start: 20071011, end: 20071017
  2. ITRACONAZOLE [Suspect]
     Indication: DRUG USE FOR UNKNOWN INDICATION
     Dosage: 100 MG, ORAL
     Route: 048
     Dates: start: 20070910, end: 20071007
  3. AVELOX [Concomitant]
  4. CARBENIN (BETAMIPRON, PANIPENEM) [Concomitant]
  5. DOPAMINE HYDROCHLORIDE [Concomitant]
  6. SOLU-MEDROL [Concomitant]
  7. PLATELETS [Concomitant]
  8. PREDONINE (PREDNISOLONE SODIUM SUCCINATE) [Concomitant]
  9. GASTER D [Concomitant]

REACTIONS (4)
  - ALANINE AMINOTRANSFERASE INCREASED [None]
  - ASPARTATE AMINOTRANSFERASE INCREASED [None]
  - BLOOD BILIRUBIN INCREASED [None]
  - HEPATIC FUNCTION ABNORMAL [None]
